FAERS Safety Report 20825189 (Version 3)
Quarter: 2022Q2

REPORT INFORMATION
  Report Type: Report from Study
  Country: US (occurrence: US)
  Receive Date: 20220513
  Receipt Date: 20220531
  Transmission Date: 20220721
  Serious: Yes (Hospitalization)
  Sender: FDA-Public Use
  Company Number: US-SA-SAC20220511000550

PATIENT
  Age: 62 Year
  Sex: Male
  Weight: 88.5 kg

DRUGS (4)
  1. ISATUXIMAB-IRFC [Suspect]
     Active Substance: ISATUXIMAB-IRFC
     Indication: Plasma cell myeloma refractory
     Dosage: 10 MG/KG
     Route: 042
     Dates: start: 20220506, end: 20220506
  2. CARFILZOMIB [Suspect]
     Active Substance: CARFILZOMIB
     Indication: Plasma cell myeloma refractory
     Dosage: 56 MG/M2
     Dates: start: 20220506, end: 20220506
  3. POMALIDOMIDE [Suspect]
     Active Substance: POMALIDOMIDE
     Indication: Plasma cell myeloma refractory
     Dosage: 4 MG, QD
     Route: 048
     Dates: start: 20220506, end: 20220506
  4. DEXAMETHASONE [Suspect]
     Active Substance: DEXAMETHASONE
     Indication: Plasma cell myeloma refractory
     Dosage: 40 MG
     Route: 048
     Dates: start: 20220506, end: 20220506

REACTIONS (6)
  - Musculoskeletal chest pain [Unknown]
  - Pyrexia [Unknown]
  - Neutropenia [Unknown]
  - Abdominal pain [Recovering/Resolving]
  - Hypoxia [Recovering/Resolving]
  - Flushing [Unknown]

NARRATIVE: CASE EVENT DATE: 20220512
